FAERS Safety Report 15957497 (Version 1)
Quarter: 2019Q1

REPORT INFORMATION
  Report Type: Spontaneous
  Country: CA (occurrence: CA)
  Receive Date: 20190213
  Receipt Date: 20190213
  Transmission Date: 20190417
  Serious: Yes (Hospitalization, Other)
  Sender: FDA-Public Use
  Company Number: CA-TEVA-2019-CA-1012323

PATIENT
  Age: 74 Year

DRUGS (2)
  1. ORENCIA [Concomitant]
     Active Substance: ABATACEPT
  2. METHOTREXATE. [Suspect]
     Active Substance: METHOTREXATE
     Indication: PRODUCT USED FOR UNKNOWN INDICATION
     Route: 065

REACTIONS (5)
  - Ulcer haemorrhage [Recovered/Resolved]
  - Pneumonia [Recovered/Resolved]
  - Liver function test increased [Recovered/Resolved]
  - Condition aggravated [Recovered/Resolved]
  - Liver disorder [Recovered/Resolved]
